FAERS Safety Report 10246454 (Version 1)
Quarter: 2014Q2

REPORT INFORMATION
  Report Type: Spontaneous
  Country: FR (occurrence: FR)
  Receive Date: 20140619
  Receipt Date: 20140619
  Transmission Date: 20141212
  Serious: Yes (Hospitalization)
  Sender: FDA-Public Use
  Company Number: FR-PFIZER INC-2014164223

PATIENT
  Age: 65 Year
  Sex: Female

DRUGS (2)
  1. EVEROLIMUS [Interacting]
     Indication: BREAST CANCER
     Dosage: UNK
  2. QUINAPRIL HCL [Suspect]
     Indication: HYPERTENSION
     Dosage: UNK

REACTIONS (2)
  - Drug interaction [Recovered/Resolved]
  - Angioedema [Recovered/Resolved]
